FAERS Safety Report 10879030 (Version 1)
Quarter: 2015Q1

REPORT INFORMATION
  Report Type: Spontaneous
  Country: US (occurrence: US)
  Receive Date: 20150302
  Receipt Date: 20150302
  Transmission Date: 20150721
  Serious: Yes (Death, Life-Threatening, Hospitalization)
  Sender: FDA-Public Use
  Company Number: -SA-200810918EU

PATIENT
  Age: 68 Year
  Sex: Female
  Weight: 61 kg

DRUGS (13)
  1. LEVOXYL [Concomitant]
     Active Substance: LEVOTHYROXINE SODIUM
     Indication: THYROID DISORDER
     Route: 048
     Dates: start: 20030929
  2. DILTIAZEM [Concomitant]
     Active Substance: DILTIAZEM
     Route: 048
     Dates: start: 20050804
  3. FUROSEMIDE. [Concomitant]
     Active Substance: FUROSEMIDE
     Indication: POLYURIA
     Route: 048
     Dates: start: 20050922
  4. PERCOCET [Concomitant]
     Active Substance: ACETAMINOPHEN\OXYCODONE HYDROCHLORIDE
     Indication: PAIN
     Route: 048
     Dates: start: 20050922
  5. NORTRIPTYLINE [Concomitant]
     Active Substance: NORTRIPTYLINE
     Indication: DEPRESSION
     Route: 048
     Dates: start: 20050922
  6. FIBERCON [Concomitant]
     Active Substance: CALCIUM POLYCARBOPHIL
     Indication: CONSTIPATION
     Route: 048
     Dates: start: 20050929
  7. SUNITINIB MALATE [Suspect]
     Active Substance: SUNITINIB MALATE
     Indication: NON-SMALL CELL LUNG CANCER METASTATIC
     Route: 048
     Dates: start: 20050811, end: 20051027
  8. AMBIEN [Concomitant]
     Active Substance: ZOLPIDEM TARTRATE
     Indication: INSOMNIA
     Route: 048
     Dates: start: 20050922
  9. POTASSIUM [Concomitant]
     Active Substance: POTASSIUM
     Indication: MINERAL SUPPLEMENTATION
     Route: 048
     Dates: start: 20050922
  10. CELEXA [Concomitant]
     Active Substance: CITALOPRAM HYDROBROMIDE
     Indication: DEPRESSION
     Route: 048
     Dates: start: 20030929
  11. CYCLOBENZAPRINE [Concomitant]
     Active Substance: CYCLOBENZAPRINE
     Indication: MUSCLE RELAXANT THERAPY
     Route: 048
     Dates: start: 20030929
  12. LOVENOX [Suspect]
     Active Substance: ENOXAPARIN SODIUM
     Indication: ANTICOAGULANT THERAPY
     Route: 058
     Dates: start: 20051025, end: 20051027
  13. HEPARIN [Concomitant]
     Active Substance: HEPARIN SODIUM
     Route: 042
     Dates: start: 20051027, end: 20051027

REACTIONS (11)
  - Hypotension [Fatal]
  - Mental status changes [Unknown]
  - Haematoma [Fatal]
  - Oxygen saturation decreased [Fatal]
  - Hypovolaemic shock [Fatal]
  - Haemoglobin decreased [Unknown]
  - Acidosis [Fatal]
  - Pulmonary embolism [Fatal]
  - Dyspnoea [Fatal]
  - Haemorrhage [Fatal]
  - Respiratory failure [Fatal]

NARRATIVE: CASE EVENT DATE: 20051025
